FAERS Safety Report 7070487-7 (Version None)
Quarter: 2010Q4

REPORT INFORMATION
  Report Type: 
  Country: None (occurrence: None)
  Receive Date: 20101027
  Receipt Date: 20101027
  Transmission Date: 20110411
  Serious: Yes (Hospitalization, Other)
  Sender: FDA-Public Use
  Company Number: None

PATIENT
  Age: 10 Year
  Sex: Female
  Weight: 46.2669 kg

DRUGS (1)
  1. SERTRALINE HYDROCHLORIDE [Suspect]
     Indication: ANXIETY
     Dosage: 1 TABLET FOR FIRST 14 DAYS DAILY PO
     Route: 048
     Dates: start: 20100813, end: 20100906

REACTIONS (8)
  - HALLUCINATION [None]
  - MOVEMENT DISORDER [None]
  - OROPHARYNGEAL PAIN [None]
  - PANIC ATTACK [None]
  - PSYCHOTIC BEHAVIOUR [None]
  - SKIN DISCOLOURATION [None]
  - TREMOR [None]
  - VISION BLURRED [None]
